FAERS Safety Report 8182211-5 (Version None)
Quarter: 2012Q1

REPORT INFORMATION
  Report Type: 
  Country: None (occurrence: None)
  Receive Date: 20120302
  Receipt Date: 20120222
  Transmission Date: 20120608
  Serious: Yes (Congenital Anomaly)
  Sender: FDA-Public Use
  Company Number: PHHY2011US90223

PATIENT

DRUGS (4)
  1. CARBAMAZEPINE [Suspect]
     Route: 064
  2. GABAPENTIN [Suspect]
     Route: 064
  3. CLONAZEPAM [Suspect]
     Route: 064
  4. TOPIRAMATE [Suspect]
     Route: 064

REACTIONS (2)
  - CLEFT LIP AND PALATE [None]
  - FOETAL EXPOSURE DURING PREGNANCY [None]
